FAERS Safety Report 10064381 (Version 1)
Quarter: 2014Q2

REPORT INFORMATION
  Report Type: Spontaneous
  Country: US (occurrence: None)
  Receive Date: 20140407
  Receipt Date: 20140407
  Transmission Date: 20141212
  Serious: Yes (Other)
  Sender: FDA-Public Use
  Company Number: None

PATIENT
  Age: 33 Year
  Sex: Female
  Weight: 64.86 kg

DRUGS (1)
  1. PARAGARD [Suspect]
     Indication: CONTRACEPTION
     Route: 015
     Dates: start: 20130821, end: 20130927

REACTIONS (5)
  - Tachycardia [None]
  - Alopecia [None]
  - Palpitations [None]
  - Weight increased [None]
  - Thyroid function test abnormal [None]
